FAERS Safety Report 12957934 (Version 1)
Quarter: 2016Q4

REPORT INFORMATION
  Report Type: Other
  Country: NZ (occurrence: NZ)
  Receive Date: 20161118
  Receipt Date: 20161118
  Transmission Date: 20170207
  Serious: Yes (Hospitalization)
  Sender: FDA-Public Use
  Company Number: NZ--2016-NZ-000001

PATIENT
  Age: 54 Year
  Sex: Female
  Weight: 75 kg

DRUGS (2)
  1. LOSARTAN POTASSIUM TABLETS USP (VIVIMED) [Suspect]
     Active Substance: LOSARTAN POTASSIUM
     Indication: INTENTIONAL OVERDOSE
     Dosage: 2700 GM
  2. AMLODIPINE [Suspect]
     Active Substance: AMLODIPINE BESYLATE
     Indication: INTENTIONAL OVERDOSE
     Dosage: 200 MG

REACTIONS (3)
  - Respiratory failure [Unknown]
  - Intentional overdose [Recovered/Resolved]
  - Acute kidney injury [Recovered/Resolved]
